FAERS Safety Report 7146164-0 (Version None)
Quarter: 2010Q4

REPORT INFORMATION
  Report Type: 
  Country: None (occurrence: None)
  Receive Date: 20101208
  Receipt Date: 20101130
  Transmission Date: 20110411
  Serious: Yes (Hospitalization, Other)
  Sender: FDA-Public Use
  Company Number: US-US-EMD SERONO, INC.-232488J09USA

PATIENT
  Sex: Female

DRUGS (4)
  1. REBIF [Suspect]
     Indication: MULTIPLE SCLEROSIS
     Route: 058
     Dates: start: 20061020, end: 20091001
  2. UNSPECIFIED STEROIDS [Concomitant]
     Indication: MULTIPLE SCLEROSIS
     Dates: start: 20020101
  3. UNSPECIFIED ARTHRITIS MEDICATION [Concomitant]
     Indication: ARTHRITIS
  4. UNSPECIFIED BLOOD PRESSURE MEDICATION [Concomitant]
     Indication: HYPERTENSION

REACTIONS (2)
  - CYST [None]
  - MULTIPLE SCLEROSIS RELAPSE [None]
